FAERS Safety Report 8185887-1 (Version None)
Quarter: 2012Q1

REPORT INFORMATION
  Report Type: 
  Country: None (occurrence: None)
  Receive Date: 20120305
  Receipt Date: 20120113
  Transmission Date: 20120608
  Serious: Yes (Other)
  Sender: FDA-Public Use
  Company Number: US-ROCHE-792057

PATIENT
  Sex: Female
  Weight: 43.13 kg

DRUGS (5)
  1. ACCUTANE [Suspect]
     Dates: start: 19980101, end: 19990101
  2. ACETAMINOPHEN [Concomitant]
  3. ATIVAN [Concomitant]
  4. ACCUTANE [Suspect]
     Indication: ACNE
     Dates: start: 19880101, end: 19900101
  5. ACCUTANE [Suspect]
     Dates: start: 19930101, end: 19940101

REACTIONS (11)
  - INFLAMMATORY BOWEL DISEASE [None]
  - SUICIDAL IDEATION [None]
  - EMOTIONAL DISTRESS [None]
  - BIPOLAR DISORDER [None]
  - SMALL INTESTINAL OBSTRUCTION [None]
  - CROHN'S DISEASE [None]
  - MENTAL DISORDER [None]
  - COLITIS ULCERATIVE [None]
  - ACNE [None]
  - DEPRESSION [None]
  - RASH [None]
